FAERS Safety Report 10009644 (Version 2)
Quarter: 2014Q1

REPORT INFORMATION
  Report Type: Spontaneous
  Country: US (occurrence: US)
  Receive Date: 20140312
  Receipt Date: 20140312
  Transmission Date: 20141002
  Serious: No
  Sender: FDA-Public Use
  Company Number: US-INCYTE CORPORATION-2012IN001733

PATIENT
  Age: 60 Year
  Sex: Female
  Weight: 76.19 kg

DRUGS (9)
  1. JAKAFI [Suspect]
     Indication: MYELOFIBROSIS
     Dosage: 15 MG, BID
     Route: 048
     Dates: start: 20120814, end: 20120909
  2. JAKAFI [Suspect]
     Dosage: 10 MG, BID
     Route: 048
     Dates: start: 20120910, end: 20130118
  3. AMBIEN [Concomitant]
     Dosage: 10 MG, UNK
  4. ZANTAC [Concomitant]
     Dosage: 150 MG, BID
  5. STROVITE [Concomitant]
     Dosage: UNK, QD
  6. RISPERIDONE [Concomitant]
     Dosage: 2 MG, UNK
  7. HYZAAR [Concomitant]
     Dosage: 100/12.5, QD
  8. ESCITALOPRAM [Concomitant]
     Dosage: 10 MG, UNK
  9. VENTOLIN [Concomitant]
     Dosage: UNK, PRN

REACTIONS (7)
  - Local swelling [Recovered/Resolved]
  - Pain in extremity [Recovered/Resolved]
  - Vision blurred [Recovered/Resolved]
  - Fatigue [Recovered/Resolved]
  - Dysphagia [Recovered/Resolved]
  - Sensation of foreign body [Recovered/Resolved]
  - Drug ineffective [Unknown]
